FAERS Safety Report 17169331 (Version 1)
Quarter: 2019Q4

REPORT INFORMATION
  Report Type: Spontaneous
  Country: US (occurrence: US)
  Receive Date: 20191218
  Receipt Date: 20191218
  Transmission Date: 20200122
  Serious: Yes (Hospitalization)
  Sender: FDA-Public Use
  Company Number: US-PFIZER INC-2019545811

PATIENT
  Age: 52 Year
  Sex: Male
  Weight: 117.9 kg

DRUGS (1)
  1. REVATIO [Suspect]
     Active Substance: SILDENAFIL CITRATE
     Indication: CARDIAC DISORDER
     Dosage: 40 MG, 3X/DAY
     Dates: start: 2018

REACTIONS (3)
  - Gastrointestinal haemorrhage [Not Recovered/Not Resolved]
  - Cerebrovascular accident [Unknown]
  - Overdose [Unknown]

NARRATIVE: CASE EVENT DATE: 2018
